FAERS Safety Report 4641776-8 (Version None)
Quarter: 2005Q2

REPORT INFORMATION
  Report Type: 
  Country: None (occurrence: None)
  Receive Date: 20050420
  Receipt Date: 20050406
  Transmission Date: 20051028
  Serious: Yes (Other)
  Sender: FDA-Public Use
  Company Number: USA050495022

PATIENT
  Age: 37 Year
  Sex: Female

DRUGS (1)
  1. PROZAC [Suspect]
     Dosage: 20 MG DAY
     Dates: start: 20030801

REACTIONS (3)
  - DRUG INEFFECTIVE [None]
  - GASTRIC BYPASS [None]
  - POST PROCEDURAL COMPLICATION [None]
